FAERS Safety Report 24234449 (Version 2)
Quarter: 2024Q4

REPORT INFORMATION
  Report Type: Spontaneous
  Country: US (occurrence: US)
  Receive Date: 20240821
  Receipt Date: 20241111
  Transmission Date: 20250115
  Serious: Yes (Other)
  Sender: BRISTOL-MYERS SQUIBB COMPANY
  Company Number: US-BRISTOL-MYERS SQUIBB COMPANY-2024-128977

PATIENT
  Age: 78 Year
  Sex: Male

DRUGS (2)
  1. LENALIDOMIDE [Suspect]
     Active Substance: LENALIDOMIDE
     Indication: Plasma cell myeloma
     Dosage: TAKE 1 CAPSULE (15MG TOTAL) WHOLE BY MOUTH WITH WATER EVERY DAY FOR 21 DAYS, RESUME AFTER 7 DAYS OFF
     Route: 048
     Dates: start: 20240207
  2. LENALIDOMIDE [Suspect]
     Active Substance: LENALIDOMIDE
     Dosage: TAKE 1 CAPSULE (15MG TOTAL) WHOLE BY MOUTH WITH WATER EVERY DAY FOR 21 DAYS, RESUME AFTER 7 DAYS OFF
     Route: 048

REACTIONS (6)
  - Fatigue [Unknown]
  - Diarrhoea [Unknown]
  - Procedural pain [Unknown]
  - Pollakiuria [Unknown]
  - Movement disorder [Unknown]
  - Drug ineffective [Unknown]
